FAERS Safety Report 9767608 (Version 2)
Quarter: 2014Q2

REPORT INFORMATION
  Report Type: Report from Study
  Country: DE (occurrence: DE)
  Receive Date: 20131217
  Receipt Date: 20140409
  Transmission Date: 20141212
  Serious: Yes (Hospitalization)
  Sender: FDA-Public Use
  Company Number: DE-BAYER-2013-152852

PATIENT
  Age: 23 Year
  Sex: Male
  Weight: 178 kg

DRUGS (1)
  1. BETAFERON [Suspect]
     Indication: MULTIPLE SCLEROSIS
     Dosage: UNK
     Dates: start: 20130305

REACTIONS (6)
  - Influenza [None]
  - Nausea [None]
  - Vomiting [None]
  - Asthenia [None]
  - Diarrhoea [Recovered/Resolved]
  - Vomiting [Recovered/Resolved]
